FAERS Safety Report 13449655 (Version 2)
Quarter: 2017Q2

REPORT INFORMATION
  Report Type: Report from Study
  Country: None (occurrence: BE)
  Receive Date: 20170417
  Receipt Date: 20170428
  Transmission Date: 20170830
  Serious: Yes (Hospitalization)
  Sender: FDA-Public Use
  Company Number: BE-ABBVIE-17P-013-1925309-00

PATIENT
  Age: 46 Year
  Sex: Male
  Weight: 94 kg

DRUGS (3)
  1. DUODOPA [Suspect]
     Active Substance: CARBIDOPA\LEVODOPA
     Indication: PARKINSON^S DISEASE
     Dosage: AM=11ML, CD=5ML/HR DURING 16HRS, ED=3ML
     Route: 050
     Dates: start: 20151104, end: 20160111
  2. GLUCOPHAGE [Concomitant]
     Active Substance: METFORMIN HYDROCHLORIDE
     Indication: DIABETES MELLITUS
  3. DUODOPA [Suspect]
     Active Substance: CARBIDOPA\LEVODOPA
     Dosage: AM=11ML, CD=5.6ML/HR DURING 16HRS, ED=3ML
     Route: 050
     Dates: start: 20160111

REACTIONS (4)
  - Device dislocation [Recovered/Resolved]
  - Device use issue [Unknown]
  - Abdominal pain upper [Unknown]
  - Abdominal wall disorder [Unknown]

NARRATIVE: CASE EVENT DATE: 20170301
